FAERS Safety Report 10962691 (Version 2)
Quarter: 2015Q2

REPORT INFORMATION
  Report Type: Report from Study
  Country: DE (occurrence: DE)
  Receive Date: 20150327
  Receipt Date: 20150512
  Transmission Date: 20150821
  Serious: Yes (Hospitalization, Other)
  Sender: FDA-Public Use
  Company Number: DE-ABBVIE-15P-062-1365414-00

PATIENT
  Age: 57 Year
  Sex: Female

DRUGS (10)
  1. TILIDIN [Concomitant]
     Active Substance: NALOXONE HYDROCHLORIDE\TILIDINE HYDROCHLORIDE
     Indication: PRODUCT USED FOR UNKNOWN INDICATION
  2. NOVALGIN [Concomitant]
     Active Substance: METAMIZOLE SODIUM
     Indication: PRODUCT USED FOR UNKNOWN INDICATION
  3. CITALOPRAM [Concomitant]
     Active Substance: CITALOPRAM HYDROBROMIDE
     Indication: PRODUCT USED FOR UNKNOWN INDICATION
  4. MELPERON [Concomitant]
     Active Substance: MELPERONE
     Indication: PRODUCT USED FOR UNKNOWN INDICATION
     Dosage: 10 MILLILITER
  5. LEPONEX [Concomitant]
     Active Substance: CLOZAPINE
     Indication: PRODUCT USED FOR UNKNOWN INDICATION
  6. DUODOPA [Suspect]
     Active Substance: CARBIDOPA\LEVODOPA
     Indication: PARKINSON^S DISEASE
     Dosage: MD 5.2ML. CRD 2.1ML/H, ED 0.8ML
     Route: 050
     Dates: start: 20120115
  7. NACUM RET 100 [Concomitant]
     Indication: PRODUCT USED FOR UNKNOWN INDICATION
  8. MACROGOL [Concomitant]
     Active Substance: POLYETHYLENE GLYCOLS
     Indication: PRODUCT USED FOR UNKNOWN INDICATION
     Dosage: BAG
  9. PANTOZOL [Concomitant]
     Active Substance: PANTOPRAZOLE SODIUM
     Indication: PRODUCT USED FOR UNKNOWN INDICATION
     Dosage: 40 MILLIGRAM
  10. MOTILIUM [Concomitant]
     Active Substance: DOMPERIDONE
     Indication: PRODUCT USED FOR UNKNOWN INDICATION

REACTIONS (16)
  - Decreased appetite [Unknown]
  - Streptococcus test positive [Unknown]
  - General physical health deterioration [Unknown]
  - Apathy [Unknown]
  - Weight decreased [Unknown]
  - Abdominal infection [Unknown]
  - Abdominal pain [Unknown]
  - Pleural effusion [Recovering/Resolving]
  - Nausea [Unknown]
  - Depression [Unknown]
  - Abdominal wall abscess [Recovering/Resolving]
  - Restlessness [Unknown]
  - Anxiety [Unknown]
  - Carbohydrate antigen 125 increased [Unknown]
  - Atelectasis [Recovering/Resolving]
  - Abdominal distension [Unknown]

NARRATIVE: CASE EVENT DATE: 201503
